FAERS Safety Report 4626176-9 (Version None)
Quarter: 2005Q2

REPORT INFORMATION
  Report Type: 
  Country: None (occurrence: None)
  Receive Date: 20050404
  Receipt Date: 20040909
  Transmission Date: 20051028
  Serious: Yes (Life-Threatening, Hospitalization)
  Sender: FDA-Public Use
  Company Number: US-2004-BP-07912BP

PATIENT
  Age: 24 Year
  Sex: Female

DRUGS (2)
  1. VIRAMUNE [Suspect]
     Indication: VERTICAL INFECTION TRANSMISSION
     Route: 048
  2. COMBIVIR [Suspect]
     Indication: HIV INFECTION
     Route: 048

REACTIONS (4)
  - ANAEMIA [None]
  - BLOOD BILIRUBIN INCREASED [None]
  - HEADACHE [None]
  - POSTPARTUM HAEMORRHAGE [None]
